FAERS Safety Report 5058179-7 (Version None)
Quarter: 2006Q2

REPORT INFORMATION
  Report Type: 
  Country: None (occurrence: None)
  Receive Date: 20060622
  Receipt Date: 20051209
  Transmission Date: 20061013
  Serious: Yes (Hospitalization)
  Sender: FDA-Public Use
  Company Number: US-JNJFOC-20051101137

PATIENT
  Sex: Female

DRUGS (1)
  1. DURAGESIC-100 [Suspect]
     Indication: PAIN
     Dosage: 75 UG/HR, TRANSDERMAL
     Route: 062

REACTIONS (4)
  - ANXIETY [None]
  - HYPERHIDROSIS [None]
  - NAUSEA [None]
  - VOMITING [None]
